FAERS Safety Report 5654693-1 (Version None)
Quarter: 2008Q1

REPORT INFORMATION
  Report Type: 
  Country: None (occurrence: None)
  Receive Date: 20080307
  Receipt Date: 20080229
  Transmission Date: 20080703
  Serious: Yes (Death)
  Sender: FDA-Public Use
  Company Number: JP-JNJFOC-20080301490

PATIENT
  Age: 9 Decade
  Sex: Male

DRUGS (2)
  1. CRAVIT [Suspect]
     Indication: NASOPHARYNGITIS
     Route: 048
     Dates: start: 20080226, end: 20080227
  2. INHALATION MEDICATION [Concomitant]
     Indication: ASTHMA
     Route: 065

REACTIONS (1)
  - CARDIAC FAILURE ACUTE [None]
